FAERS Safety Report 18903672 (Version 1)
Quarter: 2021Q1

REPORT INFORMATION
  Report Type: Spontaneous
  Country: US (occurrence: US)
  Receive Date: 20210216
  Receipt Date: 20210216
  Transmission Date: 20210420
  Serious: No
  Sender: FDA-Public Use
  Company Number: None

PATIENT
  Age: 66 Year
  Sex: Female
  Weight: 76.05 kg

DRUGS (13)
  1. CAPECITABINE. [Suspect]
     Active Substance: CAPECITABINE
     Indication: BREAST CANCER FEMALE
     Dosage: ?          OTHER FREQUENCY:4QAM3QPMBID 14/21;?
     Route: 048
     Dates: start: 20200911, end: 20210216
  2. FLONASE [Concomitant]
     Active Substance: FLUTICASONE PROPIONATE
  3. LORAZEPAM. [Concomitant]
     Active Substance: LORAZEPAM
  4. AZELASTINE. [Concomitant]
     Active Substance: AZELASTINE HYDROCHLORIDE
  5. LIDOCAINE?PRILOCAINE [Concomitant]
     Active Substance: LIDOCAINE\PRILOCAINE
  6. VIMPAT [Concomitant]
     Active Substance: LACOSAMIDE
  7. LISINOPRIL. [Concomitant]
     Active Substance: LISINOPRIL
  8. ALBUTEROL. [Concomitant]
     Active Substance: ALBUTEROL
  9. CILOXAN [Concomitant]
     Active Substance: CIPROFLOXACIN HYDROCHLORIDE
  10. GYNAZOLE?1 [Concomitant]
     Active Substance: BUTOCONAZOLE NITRATE
  11. PROAIR HFA [Concomitant]
     Active Substance: ALBUTEROL SULFATE
  12. AMLODIPINE [Concomitant]
     Active Substance: AMLODIPINE BESYLATE
  13. POTASSIUM CHLORIDE. [Concomitant]
     Active Substance: POTASSIUM CHLORIDE

REACTIONS (4)
  - Peripheral swelling [None]
  - Swelling [None]
  - Seizure [None]
  - Brain oedema [None]

NARRATIVE: CASE EVENT DATE: 20210216
